FAERS Safety Report 8279571 (Version 3)
Quarter: 2014Q2

REPORT INFORMATION
  Report Type: Spontaneous
  Country: JP (occurrence: JP)
  Receive Date: 20111208
  Receipt Date: 20140623
  Transmission Date: 20141212
  Serious: Yes (Hospitalization, Disabling)
  Sender: FDA-Public Use
  Company Number: JP-B.I. PHARMACEUTICALS,INC./RIDGEFIELD-2011-BP-24056NB

PATIENT
  Age: 76 Year
  Sex: Male
  Weight: 55.6 kg

DRUGS (15)
  1. PRAZAXA [Suspect]
     Indication: CARDIAC FAILURE CHRONIC
     Dosage: 220 MG
     Route: 048
     Dates: start: 201106
  2. BAYASPIRIN [Concomitant]
     Indication: MYOCARDIAL INFARCTION
     Dosage: 100 MG
     Route: 048
     Dates: start: 20081008, end: 20110722
  3. MEXITIL [Concomitant]
     Indication: MYOCARDIAL INFARCTION
     Dosage: 300 MG
     Route: 048
  4. SIGMART [Concomitant]
     Indication: MYOCARDIAL INFARCTION
     Dosage: 15 MG
     Route: 048
  5. ADALAT [Concomitant]
     Indication: HYPERTENSION
     Dosage: 40 MG
     Route: 048
  6. TANATRIL [Concomitant]
     Indication: HYPERTENSION
     Dosage: 5 MG
     Route: 048
  7. MINIPRESS [Concomitant]
     Indication: HYPERTENSION
     Dosage: 4 MG
     Route: 048
  8. OLMETEC [Concomitant]
     Indication: HYPERTENSION
     Dosage: 40 MG
     Route: 048
  9. LIPITOR [Concomitant]
     Indication: HYPERLIPIDAEMIA
     Dosage: 10 MG
     Route: 048
  10. SELBEX [Concomitant]
     Dosage: 1.5 MG
     Route: 048
  11. GASTER D [Concomitant]
     Dosage: 20 MG
     Route: 048
  12. BROMHEXINE [Concomitant]
     Indication: EMPHYSEMA
     Dosage: 24 MG
     Route: 048
  13. ASTAZIS [Concomitant]
     Indication: EMPHYSEMA
     Dosage: 6 MG
     Route: 048
  14. KEJIFEN [Concomitant]
     Dosage: 30 MG
     Route: 048
  15. LYZYME [Concomitant]
     Dosage: 3 MG
     Route: 048

REACTIONS (2)
  - Putamen haemorrhage [Recovered/Resolved with Sequelae]
  - Pneumonia aspiration [Not Recovered/Not Resolved]
